FAERS Safety Report 7647211-X (Version None)
Quarter: 2011Q3

REPORT INFORMATION
  Report Type: 
  Country: None (occurrence: None)
  Receive Date: 20110711
  Receipt Date: 20110318
  Transmission Date: 20111222
  Serious: Yes (Other)
  Sender: FDA-Public Use
  Company Number: IPC201103-000343

PATIENT
  Sex: Female

DRUGS (3)
  1. REGLAN [Suspect]
     Dosage: ORAL
     Route: 048
  2. METOCLOPRAMIDE [Suspect]
     Dosage: 5 MG TABLETS, ORAL
     Route: 048
     Dates: start: 20100501, end: 20110101
  3. METOCLOPRAMIDE HYDROCHLORIDE [Suspect]
     Dosage: 5 MG TABLETS, ORAL
     Route: 048
     Dates: start: 20100501, end: 20110101

REACTIONS (1)
  - TREMOR [None]
